FAERS Safety Report 4584281-X (Version None)
Quarter: 2005Q1

REPORT INFORMATION
  Report Type: 
  Country: None (occurrence: None)
  Receive Date: 20050216
  Receipt Date: 20050214
  Transmission Date: 20050727
  Serious: Yes (Other)
  Sender: FDA-Public Use
  Company Number: PHBS2005CH02278

PATIENT
  Age: 86 Year
  Sex: 0

DRUGS (9)
  1. SEROPRAM [Suspect]
     Dosage: 10 MG, QD
     Route: 048
  2. OXYCONTIN [Suspect]
     Dosage: 20 MG, QD
     Route: 048
     Dates: start: 20050112, end: 20050114
  3. MADOPAR [Concomitant]
     Dosage: 500 MG, QD
     Route: 048
  4. EFFORTIL [Concomitant]
     Dosage: 20 DRP, QD
  5. MAGNESIUM [Concomitant]
     Dosage: 20 GTT, QD
     Route: 048
  6. TRANSIPEG [Concomitant]
     Dosage: 2 DF, QD
  7. MS CONTIN [Concomitant]
     Dosage: 20 MG, QD
     Dates: end: 20050112
  8. MS CONTIN [Concomitant]
     Dates: start: 20050114
  9. PARLODEL [Suspect]
     Dosage: 15 MG, QD
     Route: 048

REACTIONS (4)
  - ASTHENIA [None]
  - DRUG INTERACTION [None]
  - DYSSTASIA [None]
  - MUSCULOSKELETAL STIFFNESS [None]
